FAERS Safety Report 25789855 (Version 1)
Quarter: 2025Q3

REPORT INFORMATION
  Report Type: Spontaneous
  Country: US (occurrence: US)
  Receive Date: 20250911
  Receipt Date: 20250911
  Transmission Date: 20251021
  Serious: Yes (Other)
  Sender: RECKITT BENCKISER
  Company Number: US-PROD-AS2-212756134-RB-089331-2024

PATIENT
  Age: 43 Year
  Sex: Female
  Weight: 54.431 kg

DRUGS (2)
  1. MUCINEX FAST-MAX NIGHT TIME COLD AND FLU (ACETAMINOPHEN\DIPHENHYDRAMIN [Suspect]
     Active Substance: ACETAMINOPHEN\DIPHENHYDRAMINE HYDROCHLORIDE\PHENYLEPHRINE HYDROCHLORIDE
     Indication: Cough
     Route: 048
     Dates: start: 20240429
  2. SPIRONOLACTONE [Concomitant]
     Active Substance: SPIRONOLACTONE
     Indication: Acne
     Route: 065

REACTIONS (9)
  - Near death experience [Recovering/Resolving]
  - Dyspnoea [Recovering/Resolving]
  - Hypokinesia [Recovering/Resolving]
  - Feeling hot [Recovering/Resolving]
  - Musculoskeletal stiffness [Recovering/Resolving]
  - Panic attack [Recovering/Resolving]
  - Dry throat [Not Recovered/Not Resolved]
  - Lethargy [Recovering/Resolving]
  - Vomiting [Recovering/Resolving]

NARRATIVE: CASE EVENT DATE: 20240101
